FAERS Safety Report 23109719 (Version 3)
Quarter: 2023Q4

REPORT INFORMATION
  Report Type: Spontaneous
  Country: GR (occurrence: GR)
  Receive Date: 20231026
  Receipt Date: 20231130
  Transmission Date: 20240109
  Serious: Yes (Life-Threatening, Hospitalization, Disabling, Other)
  Sender: FDA-Public Use
  Company Number: GR-PFIZER INC-202300324499

PATIENT
  Age: 13 Year
  Sex: Female
  Weight: 48 kg

DRUGS (8)
  1. METHOTREXATE SODIUM [Suspect]
     Active Substance: METHOTREXATE SODIUM
     Indication: Acute lymphocytic leukaemia
     Dosage: 8000 MG (5 G/M2, 24H INFUSION)
     Route: 042
     Dates: start: 20231004, end: 20231010
  2. MERCAPTOPURINE [Concomitant]
     Active Substance: MERCAPTOPURINE
     Indication: Acute lymphocytic leukaemia
     Dosage: 40 MG, 1X/DAY
     Route: 048
     Dates: start: 20231004
  3. ENOXAPARIN [Concomitant]
     Active Substance: ENOXAPARIN
     Indication: Venous thrombosis
     Dosage: UNK
     Dates: start: 20230930, end: 20231003
  4. ENOXAPARIN [Concomitant]
     Active Substance: ENOXAPARIN
     Dosage: UNK
     Dates: start: 20231007
  5. FENTANYL [Concomitant]
     Active Substance: FENTANYL\FENTANYL CITRATE
     Indication: Sedation
     Dosage: UNK, SINGLE
     Dates: start: 20231004
  6. METHOTREXATE [Concomitant]
     Active Substance: METHOTREXATE
     Indication: Acute lymphocytic leukaemia
     Dosage: 12 MG, SINGLE DOSE EVERY 2 WEEKS
     Route: 037
     Dates: start: 20231003
  7. PROPOFOL [Concomitant]
     Active Substance: PROPOFOL
     Indication: Sedation
     Dosage: UNK, SINGLE
     Dates: start: 20231004
  8. TRIPTORELIN [Concomitant]
     Active Substance: TRIPTORELIN
     Indication: Amenorrhoea
     Dosage: EVERY 3-4 WEEKS
     Dates: start: 20231004

REACTIONS (2)
  - Nephropathy toxic [Recovered/Resolved with Sequelae]
  - Acute kidney injury [Recovered/Resolved with Sequelae]

NARRATIVE: CASE EVENT DATE: 20231004
